FAERS Safety Report 23143771 (Version 1)
Quarter: 2023Q4

REPORT INFORMATION
  Report Type: Other
  Country: US (occurrence: US)
  Receive Date: 20231103
  Receipt Date: 20231103
  Transmission Date: 20240109
  Serious: No
  Sender: FDA-Public Use
  Company Number: US-SCALL-2023-GSK-127489

PATIENT
  Age: 42 Year
  Sex: Female

DRUGS (7)
  1. DUTASTERIDE [Suspect]
     Active Substance: DUTASTERIDE
     Indication: Lichen planopilaris
     Dosage: 0.5 MG, 1D
     Route: 048
  2. CLOBETASOL [Suspect]
     Active Substance: CLOBETASOL
     Indication: Lichen planus
     Route: 061
  3. TACROLIMUS [Concomitant]
     Active Substance: TACROLIMUS
     Route: 061
  4. MINOXIDIL [Concomitant]
     Active Substance: MINOXIDIL
     Indication: Pruritus
     Dosage: 1.25 MG, QD
     Route: 048
  5. DOXYCYCLINE [Concomitant]
     Active Substance: DOXYCYCLINE
     Indication: Pruritus
     Dosage: 100 MG, QD
     Route: 061
  6. TRIAMCINOLONE [Concomitant]
     Active Substance: TRIAMCINOLONE
     Dosage: 5 MG/ ML
     Route: 026
  7. RUXOLITINIB [Concomitant]
     Active Substance: RUXOLITINIB
     Route: 061

REACTIONS (1)
  - Drug ineffective [Unknown]
